FAERS Safety Report 5056028-4 (Version None)
Quarter: 2006Q3

REPORT INFORMATION
  Report Type: 
  Country: None (occurrence: None)
  Receive Date: 20060717
  Receipt Date: 20060717
  Transmission Date: 20061208
  Serious: Yes (Other)
  Sender: FDA-Public Use
  Company Number: None

PATIENT
  Age: 57 Year
  Sex: Male

DRUGS (1)
  1. VARDENAFIL    20MG [Suspect]
     Indication: ERECTILE DYSFUNCTION
     Dosage: 20MG PRN  PO
     Route: 048
     Dates: start: 20051219, end: 20060301

REACTIONS (2)
  - FLUSHING [None]
  - THERAPEUTIC RESPONSE DECREASED [None]
